FAERS Safety Report 7656870-7 (Version None)
Quarter: 2011Q3

REPORT INFORMATION
  Report Type: 
  Country: None (occurrence: None)
  Receive Date: 20110804
  Receipt Date: 20110722
  Transmission Date: 20111222
  Serious: Yes (Other)
  Sender: FDA-Public Use
  Company Number: DE-SANOFI-AVENTIS-2011SA048153

PATIENT
  Age: 76 Year
  Sex: Male
  Weight: 84 kg

DRUGS (11)
  1. METOPROLOL TARTRATE [Concomitant]
  2. METFORMIN HCL [Concomitant]
  3. GABAPENTIN [Concomitant]
  4. PHENPROCOUMON [Concomitant]
     Dosage: 13.5 MG WEEKLY
  5. SIMVASTATIN [Concomitant]
  6. ALFUZOSIN HCL [Concomitant]
  7. INSULIN [Concomitant]
  8. ESPA-LIPON [Concomitant]
  9. SITAGLIPTIN PHOSPHATE [Concomitant]
  10. DRONEDARONE HCL [Suspect]
     Indication: ATRIAL FIBRILLATION
     Route: 048
     Dates: start: 20110314, end: 20110708
  11. DIGOXIN [Concomitant]

REACTIONS (1)
  - TRANSIENT ISCHAEMIC ATTACK [None]
